FAERS Safety Report 11847238 (Version 1)
Quarter: 2015Q4

REPORT INFORMATION
  Report Type: Spontaneous
  Country: US (occurrence: US)
  Receive Date: 20151217
  Receipt Date: 20151217
  Transmission Date: 20160305
  Serious: No
  Sender: FDA-Public Use
  Company Number: US-ROCHE-1524289

PATIENT
  Age: 51 Year
  Sex: Female

DRUGS (6)
  1. BENZONATATE. [Concomitant]
     Active Substance: BENZONATATE
     Indication: COUGH
     Dosage: 100MG CAPSULE 2 EVERY 8 HOURS AS NEEDED
     Route: 065
  2. FLUOXETIN [Concomitant]
     Active Substance: FLUOXETINE HYDROCHLORIDE
     Indication: MENOPAUSE
     Dosage: TAKE 2
     Route: 065
  3. LOSARTAN. [Concomitant]
     Active Substance: LOSARTAN
     Route: 065
  4. METFORMIN [Concomitant]
     Active Substance: METFORMIN HYDROCHLORIDE
     Route: 065
  5. ATORVASTATIN [Concomitant]
     Active Substance: ATORVASTATIN
     Route: 065
  6. TAMIFLU [Suspect]
     Active Substance: OSELTAMIVIR PHOSPHATE
     Indication: INFLUENZA
     Dosage: 1 TABLET TWICE A DAY
     Route: 065
     Dates: start: 20150115

REACTIONS (7)
  - Dry throat [Unknown]
  - Vomiting [Recovered/Resolved]
  - Cold sweat [Unknown]
  - Hyperhidrosis [Unknown]
  - Headache [Not Recovered/Not Resolved]
  - Cough [Unknown]
  - Nausea [Recovered/Resolved]

NARRATIVE: CASE EVENT DATE: 20150119
